FAERS Safety Report 7578633-3 (Version None)
Quarter: 2011Q2

REPORT INFORMATION
  Report Type: 
  Country: None (occurrence: None)
  Receive Date: 20110628
  Receipt Date: 20110620
  Transmission Date: 20111010
  Serious: Yes (Other)
  Sender: FDA-Public Use
  Company Number: US-ALLERGAN-1108356US

PATIENT
  Age: 96 Year
  Sex: Female

DRUGS (5)
  1. ALPHAGAN P [Suspect]
     Indication: GLAUCOMA
     Dosage: 1 GTT, BID
     Dates: start: 20110616
  2. TIMOPTIC [Concomitant]
  3. AZOPT [Concomitant]
  4. LUMIGAN [Concomitant]
  5. ALPHAGAN P [Suspect]
     Dosage: 1 GTT, BID
     Dates: start: 20081203

REACTIONS (1)
  - SUDDEN VISUAL LOSS [None]
